FAERS Safety Report 25031236 (Version 1)
Quarter: 2025Q1

REPORT INFORMATION
  Report Type: Spontaneous
  Country: US (occurrence: None)
  Receive Date: 20250228
  Receipt Date: 20250228
  Transmission Date: 20250408
  Serious: Yes (Hospitalization)
  Sender: FDA-CTU
  Company Number: None

PATIENT
  Sex: Female

DRUGS (13)
  1. MYCOPHENOLIC ACID [Suspect]
     Active Substance: MYCOPHENOLIC ACID
     Dosage: FREQUENCY : TWICE A DAY;?
  2. BD POSIFLUSH INJ 0.9% [Concomitant]
  3. FOLIC ACID TAB 1000MCG [Concomitant]
  4. FUROSEMIDE [Concomitant]
     Active Substance: FUROSEMIDE
  5. HYDROXYZ HCL TAB 25MG [Concomitant]
  6. LABETALOL TAB 100MG [Concomitant]
  7. LABETALOL\LABETALOL HYDROCHLORIDE [Concomitant]
     Active Substance: LABETALOL\LABETALOL HYDROCHLORIDE
  8. LACTULOSE [Concomitant]
     Active Substance: LACTULOSE
  9. LOSARTAN POT TAB 50MG [Concomitant]
  10. METHOCARBAM TAB 500MG [Concomitant]
  11. METHOCARBAM TAB 750MG [Concomitant]
  12. TACROLIMUS [Concomitant]
     Active Substance: TACROLIMUS
  13. PROGRAF [Concomitant]
     Active Substance: TACROLIMUS

REACTIONS (1)
  - Liver disorder [None]
